FAERS Safety Report 15713882 (Version 1)
Quarter: 2018Q4

REPORT INFORMATION
  Report Type: Spontaneous
  Country: US (occurrence: US)
  Receive Date: 20181212
  Receipt Date: 20181212
  Transmission Date: 20190205
  Serious: No
  Sender: FDA-Public Use
  Company Number: US-ENDO PHARMACEUTICALS INC-2018-040051

PATIENT
  Age: 50 Year
  Sex: Male
  Weight: 92.4 kg

DRUGS (1)
  1. TESTIM [Suspect]
     Active Substance: TESTOSTERONE
     Indication: TESTICULAR FAILURE
     Dosage: 50 MG, DAILY
     Route: 062
     Dates: start: 20180703, end: 20180705

REACTIONS (6)
  - Nausea [Recovered/Resolved]
  - Pruritus [Recovered/Resolved]
  - Product odour abnormal [Recovered/Resolved]
  - Wrong technique in product usage process [Recovered/Resolved]
  - Product physical issue [Recovered/Resolved]
  - Product quality issue [Recovered/Resolved]

NARRATIVE: CASE EVENT DATE: 20180703
